FAERS Safety Report 8539979-5 (Version None)
Quarter: 2012Q3

REPORT INFORMATION
  Report Type: 
  Country: None (occurrence: None)
  Receive Date: 20120726
  Receipt Date: 20120723
  Transmission Date: 20120928
  Serious: Yes (Hospitalization)
  Sender: FDA-Public Use
  Company Number: PHHY2012JP062167

PATIENT
  Age: 75 Year
  Sex: Male

DRUGS (5)
  1. VANCOMYCIN HYCHLORIDE [Suspect]
     Indication: GASTRIC ULCER HAEMORRHAGE
     Route: 042
  2. ARBEKACIN SULFATE [Suspect]
     Indication: GASTRIC ULCER HAEMORRHAGE
  3. CEFTRIAXONE SODIUM [Suspect]
     Indication: GASTRIC ULCER HAEMORRHAGE
  4. CLINDAMYCIN HCL [Suspect]
     Indication: GASTRIC ULCER HAEMORRHAGE
  5. PIPERACILLIN SODIUM [Suspect]
     Indication: GASTRIC ULCER HAEMORRHAGE

REACTIONS (15)
  - DIARRHOEA [None]
  - RECTAL CANCER [None]
  - INTESTINAL OBSTRUCTION [None]
  - CLOSTRIDIUM COLITIS [None]
  - CLOSTRIDIUM TEST POSITIVE [None]
  - PYREXIA [None]
  - GRANULOMA [None]
  - OCCULT BLOOD [None]
  - INFLAMMATION [None]
  - INTESTINAL DILATATION [None]
  - RECTAL STENOSIS [None]
  - FREQUENT BOWEL MOVEMENTS [None]
  - ANAEMIA [None]
  - RECTAL ULCER [None]
  - BLOOD PRESSURE INCREASED [None]
